FAERS Safety Report 18358743 (Version 1)
Quarter: 2020Q4

REPORT INFORMATION
  Report Type: Spontaneous
  Country: IT (occurrence: IT)
  Receive Date: 20201008
  Receipt Date: 20201008
  Transmission Date: 20210114
  Serious: Yes (Other)
  Sender: FDA-Public Use
  Company Number: IT-TEVA-2020-IT-1835803

PATIENT
  Age: 57 Year
  Sex: Female
  Weight: 60 kg

DRUGS (4)
  1. ZALTRAP [Suspect]
     Active Substance: ZIV-AFLIBERCEPT
     Indication: COLON CANCER
     Dosage: 168 MG,
     Route: 042
     Dates: start: 20191003, end: 20200818
  2. IRINOTECAN KABI [Suspect]
     Active Substance: IRINOTECAN
     Indication: COLON CANCER
     Dosage: 207.9 MG
     Route: 042
     Dates: start: 20191003, end: 20200818
  3. FLUOROURACILE TEVA 1 G/20 ML SOLUZIONE PER INFUSIONE [Suspect]
     Active Substance: FLUOROURACIL
     Dosage: 462 MG
     Route: 040
     Dates: start: 20191003, end: 20200818
  4. FLUOROURACILE TEVA 1 G/20 ML SOLUZIONE PER INFUSIONE [Suspect]
     Active Substance: FLUOROURACIL
     Indication: COLON CANCER
     Dosage: 2772 MG
     Route: 042
     Dates: start: 20191003, end: 20200818

REACTIONS (3)
  - Neutropenia [Recovering/Resolving]
  - Thrombocytopenia [Recovering/Resolving]
  - Leukopenia [Recovering/Resolving]

NARRATIVE: CASE EVENT DATE: 20200828
